FAERS Safety Report 25604830 (Version 1)
Quarter: 2025Q3

REPORT INFORMATION
  Report Type: Spontaneous
  Country: US (occurrence: US)
  Receive Date: 20250725
  Receipt Date: 20250725
  Transmission Date: 20251020
  Serious: No
  Sender: EMD SERONO INC
  Company Number: US-Merck Healthcare KGaA-2025036235

PATIENT
  Sex: Female

DRUGS (1)
  1. REBIF [Suspect]
     Active Substance: INTERFERON BETA-1A
     Indication: Multiple sclerosis
     Dosage: 44 MCG?3 TIMES A WEEK
     Dates: start: 202103

REACTIONS (4)
  - Insomnia [Unknown]
  - Gait disturbance [Unknown]
  - Injection site urticaria [Unknown]
  - Injection site hypoaesthesia [Unknown]
